APPROVED DRUG PRODUCT: PIROXICAM
Active Ingredient: PIROXICAM
Strength: 10MG
Dosage Form/Route: CAPSULE;ORAL
Application: A074036 | Product #001
Applicant: SCS PHARMACEUTICALS
Approved: May 29, 1992 | RLD: No | RS: No | Type: DISCN